FAERS Safety Report 20807904 (Version 1)
Quarter: 2022Q2

REPORT INFORMATION
  Report Type: Spontaneous
  Country: US (occurrence: None)
  Receive Date: 20220509
  Receipt Date: 20220509
  Transmission Date: 20220720
  Serious: No
  Sender: FDA-Public Use
  Company Number: None

PATIENT
  Age: 65 Year
  Sex: Male

DRUGS (1)
  1. BAMLANIVIMAB\ETESEVIMAB [Suspect]
     Active Substance: BAMLANIVIMAB\ETESEVIMAB
     Dosage: FREQUENCY : ONCE;?
     Route: 042
     Dates: start: 20211226, end: 20211226

REACTIONS (4)
  - Erythema [None]
  - Nausea [None]
  - Rash [None]
  - Vomiting [None]

NARRATIVE: CASE EVENT DATE: 20211226
